FAERS Safety Report 24939573 (Version 3)
Quarter: 2025Q3

REPORT INFORMATION
  Report Type: Spontaneous
  Country: US (occurrence: US)
  Receive Date: 20250206
  Receipt Date: 20250729
  Transmission Date: 20251020
  Serious: No
  Sender: AMGEN
  Company Number: US-AMGEN-USASP2025022152

PATIENT
  Age: 82 Year
  Sex: Female

DRUGS (1)
  1. REPATHA [Suspect]
     Active Substance: EVOLOCUMAB
     Indication: General physical health deterioration
     Dosage: UNK, Q2WK
     Route: 065
     Dates: start: 20221122

REACTIONS (5)
  - Accidental exposure to product [Unknown]
  - Drug dose omission by device [Unknown]
  - Injection site pain [Unknown]
  - Injection site haemorrhage [Unknown]
  - Off label use [Unknown]

NARRATIVE: CASE EVENT DATE: 20221122
